FAERS Safety Report 8576319-X (Version None)
Quarter: 2012Q3

REPORT INFORMATION
  Report Type: 
  Country: None (occurrence: None)
  Receive Date: 20120807
  Receipt Date: 20120726
  Transmission Date: 20120928
  Serious: Yes (Other)
  Sender: FDA-Public Use
  Company Number: US-CELGENEUS-163-21880-12072897

PATIENT

DRUGS (5)
  1. AZACITIDINE [Suspect]
     Dosage: 50 MILLIGRAM/SQ. METER
     Route: 041
  2. REVLIMID [Suspect]
     Dosage: 50 MILLIGRAM
     Route: 048
  3. AZACITIDINE [Suspect]
     Dosage: 25 MILLIGRAM/SQ. METER
     Route: 041
  4. REVLIMID [Suspect]
     Dosage: 10 MILLIGRAM
     Route: 048
  5. AZACITIDINE [Suspect]
     Dosage: 75 MILLIGRAM/SQ. METER
     Route: 041

REACTIONS (17)
  - PRURITUS [None]
  - HYPOKALAEMIA [None]
  - PAIN [None]
  - HYPERNATRAEMIA [None]
  - PNEUMONITIS [None]
  - ACTIVATED PARTIAL THROMBOPLASTIN TIME [None]
  - HYPERTENSION [None]
  - ASTHENIA [None]
  - BLOOD CREATININE INCREASED [None]
  - LUNG INFILTRATION [None]
  - LEUKAEMIA CUTIS [None]
  - HYPOXIA [None]
  - DEHYDRATION [None]
  - HYPOCALCAEMIA [None]
  - THROMBOCYTOPENIA [None]
  - PROTHROMBIN TIME [None]
  - BLOOD BILIRUBIN INCREASED [None]
